FAERS Safety Report 8833157 (Version 2)
Quarter: 2012Q4

REPORT INFORMATION
  Report Type: 
  Country: BR (occurrence: BR)
  Receive Date: 20121010
  Receipt Date: 20121029
  Transmission Date: 20130627
  Serious: Yes (Other)
  Sender: FDA-Public Use
  Company Number: PHHY2012BR088583

PATIENT
  Age: 39 Year
  Sex: Female

DRUGS (2)
  1. FORASEQ [Suspect]
     Indication: ASTHMA
  2. FORASEQ [Suspect]

REACTIONS (2)
  - Asthma [Not Recovered/Not Resolved]
  - Device malfunction [Unknown]
